FAERS Safety Report 13967583 (Version 4)
Quarter: 2018Q1

REPORT INFORMATION
  Report Type: Report from Study
  Country: None (occurrence: US)
  Receive Date: 20170914
  Receipt Date: 20180223
  Transmission Date: 20180508
  Serious: Yes (Hospitalization)
  Sender: FDA-Public Use
  Company Number: US-ABBVIE-17K-163-2101194-00

PATIENT
  Sex: Female

DRUGS (2)
  1. HUMIRA [Suspect]
     Active Substance: ADALIMUMAB
     Indication: PSORIATIC ARTHROPATHY
     Dosage: 2 DOSAGES
     Route: 058
     Dates: start: 20170303, end: 20170303
  2. HUMIRA [Suspect]
     Active Substance: ADALIMUMAB
     Indication: PSORIASIS
     Route: 058
     Dates: start: 20170311, end: 20170729

REACTIONS (7)
  - Diabetic foot [Unknown]
  - Nasopharyngitis [Unknown]
  - Localised infection [Recovering/Resolving]
  - Psoriasis [Unknown]
  - Infection susceptibility increased [Unknown]
  - Cellulitis [Unknown]
  - Immunodeficiency [Unknown]

NARRATIVE: CASE EVENT DATE: 2017
